FAERS Safety Report 10183910 (Version 2)
Quarter: 2014Q3

REPORT INFORMATION
  Report Type: Other
  Country: US (occurrence: US)
  Receive Date: 20140520
  Receipt Date: 20140930
  Transmission Date: 20150326
  Serious: Yes (Other)
  Sender: FDA-Public Use
  Company Number: US-FRI-1000067397

PATIENT
  Age: 30 Year
  Sex: Female

DRUGS (3)
  1. TEFLARO [Suspect]
     Active Substance: CEFTAROLINE FOSAMIL
     Indication: INFECTIVE PULMONARY EXACERBATION OF CYSTIC FIBROSIS
     Dosage: 600 MG EVERY 12 HOURS
     Route: 042
     Dates: start: 20111209, end: 20111222
  2. CAYSTON [Concomitant]
     Active Substance: AZTREONAM
  3. LEVOFLOXACIN [Concomitant]
     Active Substance: LEVOFLOXACIN

REACTIONS (5)
  - Chills [Unknown]
  - Pruritus [Unknown]
  - Haemolytic anaemia [Recovered/Resolved]
  - Nausea [Unknown]
  - Off label use [Recovered/Resolved]

NARRATIVE: CASE EVENT DATE: 201112
